FAERS Safety Report 8956321 (Version 1)
Quarter: 2012Q4

REPORT INFORMATION
  Report Type: 
  Country: LB (occurrence: LB)
  Receive Date: 20121210
  Receipt Date: 20121210
  Transmission Date: 20130627
  Serious: Yes (Hospitalization)
  Sender: FDA-Public Use
  Company Number: LB-SANOFI-AVENTIS-2012SA088538

PATIENT
  Age: 62 Year
  Sex: Female

DRUGS (7)
  1. LANTUS SOLOSTAR [Suspect]
     Indication: DIABETES
     Route: 058
     Dates: start: 201211
  2. SOLOSTAR [Suspect]
     Indication: DEVICE THERAPY
     Dates: start: 201211
  3. DIAMICRON [Concomitant]
     Indication: DIABETIC
     Route: 048
  4. METFORMIN HYDROCHLORIDE/VILDAGLIPTIN [Concomitant]
     Indication: DIABETIC
     Route: 048
  5. LESCOL [Concomitant]
  6. PRAXILENE [Concomitant]
  7. ASPIRIN [Concomitant]

REACTIONS (1)
  - Thrombophlebitis [Recovering/Resolving]
